FAERS Safety Report 5081201-9 (Version None)
Quarter: 2006Q3

REPORT INFORMATION
  Report Type: 
  Country: None (occurrence: None)
  Receive Date: 20060810
  Receipt Date: 20060802
  Transmission Date: 20061208
  Serious: Yes (Hospitalization)
  Sender: FDA-Public Use
  Company Number: 200610240

PATIENT
  Sex: Female

DRUGS (2)
  1. STIMATE [Suspect]
     Dates: start: 20060601
  2. AMICAR [Concomitant]

REACTIONS (4)
  - DIZZINESS [None]
  - ELECTROLYTE IMBALANCE [None]
  - LETHARGY [None]
  - MUSCLE TIGHTNESS [None]
